FAERS Safety Report 15181903 (Version 2)
Quarter: 2018Q4

REPORT INFORMATION
  Report Type: Spontaneous
  Country: JP (occurrence: JP)
  Receive Date: 20180723
  Receipt Date: 20181015
  Transmission Date: 20190204
  Serious: Yes (Hospitalization, Other)
  Sender: FDA-Public Use
  Company Number: JP-GLAXOSMITHKLINE-JP2018JPN085350

PATIENT
  Age: 70 Year
  Sex: Male

DRUGS (1)
  1. ANORO ELLIPTA [Suspect]
     Active Substance: UMECLIDINIUM BROMIDE\VILANTEROL TRIFENATATE
     Indication: EMPHYSEMA
     Dosage: 1 DF, QD
     Route: 055
     Dates: start: 201607

REACTIONS (2)
  - Feeling abnormal [Recovered/Resolved]
  - Hospitalisation [Recovering/Resolving]

NARRATIVE: CASE EVENT DATE: 20180507
